FAERS Safety Report 26084324 (Version 1)
Quarter: 2025Q4

REPORT INFORMATION
  Report Type: Spontaneous
  Country: US (occurrence: US)
  Receive Date: 20251124
  Receipt Date: 20251124
  Transmission Date: 20260118
  Serious: Yes (Life-Threatening, Other)
  Sender: MYLAN
  Company Number: US-MYLANLABS-2025M1099907

PATIENT
  Sex: Female

DRUGS (4)
  1. CROMOLYN SODIUM [Suspect]
     Active Substance: CROMOLYN SODIUM
     Indication: Product used for unknown indication
     Dosage: UNK
  2. CROMOLYN SODIUM [Suspect]
     Active Substance: CROMOLYN SODIUM
     Dosage: UNK
     Route: 065
  3. CROMOLYN SODIUM [Suspect]
     Active Substance: CROMOLYN SODIUM
     Dosage: UNK
     Route: 065
  4. CROMOLYN SODIUM [Suspect]
     Active Substance: CROMOLYN SODIUM
     Dosage: UNK

REACTIONS (1)
  - Anaphylactic reaction [Unknown]
